FAERS Safety Report 16479778 (Version 1)
Quarter: 2019Q2

REPORT INFORMATION
  Report Type: Spontaneous
  Country: US (occurrence: US)
  Receive Date: 20190626
  Receipt Date: 20190626
  Transmission Date: 20190711
  Serious: Yes (Other)
  Sender: FDA-Public Use
  Company Number: US-UCBSA-2019025441

PATIENT
  Age: 0 Year
  Sex: Male

DRUGS (1)
  1. LACOSAMIDE. [Suspect]
     Active Substance: LACOSAMIDE
     Indication: PARTIAL SEIZURES
     Dosage: 400MG IN MORNING, 300MG IN AFTERNOON, 400MG IN EVENING, 3X/DAY (TID)
     Route: 064
     Dates: start: 2018, end: 20190218

REACTIONS (2)
  - Maternal exposure before pregnancy [Unknown]
  - Atrial flutter [Recovered/Resolved]

NARRATIVE: CASE EVENT DATE: 2018
